FAERS Safety Report 20044755 (Version 1)
Quarter: 2021Q4

REPORT INFORMATION
  Report Type: Spontaneous
  Country: IT (occurrence: IT)
  Receive Date: 20211108
  Receipt Date: 20211108
  Transmission Date: 20220303
  Serious: Yes (Other)
  Sender: FDA-Public Use
  Company Number: IT-AMGEN-ITASP2021172218

PATIENT

DRUGS (2)
  1. PEGFILGRASTIM [Suspect]
     Active Substance: PEGFILGRASTIM
     Indication: Autologous haematopoietic stem cell transplant
     Dosage: 6 MILLIGRAM, QD (DAY +6)
     Route: 058
     Dates: start: 200801
  2. FILGRASTIM [Suspect]
     Active Substance: FILGRASTIM
     Indication: Autologous haematopoietic stem cell transplant
     Dosage: 5 MILLIGRAM/KILOGRAM, QD (ON DAY +6)
     Route: 058
     Dates: start: 200801

REACTIONS (2)
  - Transfusion [Unknown]
  - Infection [Unknown]
